FAERS Safety Report 6248951-X (Version None)
Quarter: 2009Q2

REPORT INFORMATION
  Report Type: 
  Country: None (occurrence: None)
  Receive Date: 20090624
  Receipt Date: 20090609
  Transmission Date: 20091009
  Serious: Yes (Hospitalization, Other)
  Sender: FDA-Public Use
  Company Number: 2006US000151

PATIENT
  Age: 38 Year
  Sex: Female
  Weight: 62.6 kg

DRUGS (8)
  1. PROTOPIC [Suspect]
     Indication: VITILIGO
     Dosage: 0.1 %, TOPICAL
     Route: 061
     Dates: start: 20021201, end: 20031101
  2. ELIDEL [Suspect]
     Indication: DRUG USE FOR UNKNOWN INDICATION
     Dates: start: 20021201
  3. TAZORAC (TAZAROTENE) CREAM [Concomitant]
  4. JUICE PLUS (ASCORBIC ACID, FOLIC ACID, LIPASE, AMYLASE, PROTEASE, CELL [Concomitant]
  5. FLAXSEED OIL (LINUM USITATISSIMUM SEED OIL) [Concomitant]
  6. B12 (CYANOCOBALAMIN-TANNIN COMPLEX) [Concomitant]
  7. IRON (IRON) [Concomitant]
  8. ASPIRIN [Concomitant]

REACTIONS (10)
  - ACNE [None]
  - BREAST CANCER FEMALE [None]
  - BREAST PROSTHESIS USER [None]
  - CARDIOLIPIN ANTIBODY POSITIVE [None]
  - CONSTIPATION [None]
  - HEADACHE [None]
  - HYPERCOAGULATION [None]
  - METASTASES TO LYMPH NODES [None]
  - NAUSEA [None]
  - VOMITING [None]
